FAERS Safety Report 21590502 (Version 1)
Quarter: 2022Q4

REPORT INFORMATION
  Report Type: Spontaneous
  Country: US (occurrence: US)
  Receive Date: 20221114
  Receipt Date: 20221114
  Transmission Date: 20230112
  Serious: No
  Sender: FDA-Public Use
  Company Number: US-BIOGEN-2022BI01153996

PATIENT
  Age: 63 Year
  Sex: Female

DRUGS (2)
  1. VUMERITY [Suspect]
     Active Substance: DIROXIMEL FUMARATE
     Indication: Multiple sclerosis
     Route: 050
     Dates: start: 20220907
  2. VUMERITY [Suspect]
     Active Substance: DIROXIMEL FUMARATE
     Route: 050
     Dates: start: 20220908, end: 20220915

REACTIONS (4)
  - Somnolence [Unknown]
  - Pruritus [Not Recovered/Not Resolved]
  - Feeling hot [Unknown]
  - Hot flush [Unknown]

NARRATIVE: CASE EVENT DATE: 20220907
